FAERS Safety Report 23914022 (Version 5)
Quarter: 2024Q4

REPORT INFORMATION
  Report Type: Spontaneous
  Country: US (occurrence: US)
  Receive Date: 20240529
  Receipt Date: 20241217
  Transmission Date: 20250114
  Serious: Yes (Hospitalization)
  Sender: PFIZER
  Company Number: US-PFIZER INC-2021536214

PATIENT
  Age: 59 Year
  Sex: Male
  Weight: 104.33 kg

DRUGS (2)
  1. SOMAVERT [Suspect]
     Active Substance: PEGVISOMANT
     Indication: Acromegaly
     Dosage: 20 MG, DAILY
     Route: 030
     Dates: start: 20151030
  2. SOMAVERT [Suspect]
     Active Substance: PEGVISOMANT
     Indication: Arthropathy

REACTIONS (4)
  - Pneumonia [Unknown]
  - Product dose omission issue [Unknown]
  - Product preparation error [Unknown]
  - Off label use [Unknown]

NARRATIVE: CASE EVENT DATE: 20151030
